FAERS Safety Report 7872230-8 (Version None)
Quarter: 2011Q4

REPORT INFORMATION
  Report Type: 
  Country: None (occurrence: None)
  Receive Date: 20111029
  Receipt Date: 20110316
  Transmission Date: 20120403
  Serious: No
  Sender: FDA-Public Use
  Company Number: US-AMGEN-USASP2011014633

PATIENT
  Age: 69 Year
  Sex: Female

DRUGS (2)
  1. ENBREL [Suspect]
     Indication: PSORIASIS
     Dosage: 50 MG, QWK
     Dates: start: 20110204
  2. ENBREL [Suspect]
     Indication: SJOGREN'S SYNDROME

REACTIONS (4)
  - TOOTH FRACTURE [None]
  - HEADACHE [None]
  - SINUS CONGESTION [None]
  - FURUNCLE [None]
